FAERS Safety Report 10012584 (Version 3)
Quarter: 2014Q1

REPORT INFORMATION
  Report Type: Spontaneous
  Country: US (occurrence: US)
  Receive Date: 20140314
  Receipt Date: 20140319
  Transmission Date: 20141002
  Serious: Yes (Death, Hospitalization, Other)
  Sender: FDA-Public Use
  Company Number: US-PFIZER INC-09-AUR-10253

PATIENT
  Age: 40 Year
  Sex: Female

DRUGS (4)
  1. SERTRALINE HCL [Suspect]
     Dosage: UNK
     Route: 065
  2. RISPERIDONE [Suspect]
     Dosage: UNK
     Route: 065
  3. HYDROCHLOROTHIAZIDE [Suspect]
     Dosage: UNK
     Route: 065
  4. GLUCOVANCE [Suspect]
     Dosage: UNK
     Route: 065

REACTIONS (7)
  - Overdose [Fatal]
  - Toxicity to various agents [Fatal]
  - Lactic acidosis [Fatal]
  - Hypotension [Fatal]
  - Lethargy [Unknown]
  - Vomiting [Unknown]
  - Hypoglycaemia [Unknown]
